FAERS Safety Report 22206169 (Version 2)
Quarter: 2024Q2

REPORT INFORMATION
  Report Type: Spontaneous
  Country: JP (occurrence: JP)
  Receive Date: 20230413
  Receipt Date: 20240606
  Transmission Date: 20240715
  Serious: Yes (Death, Hospitalization, Other)
  Sender: FDA-Public Use
  Company Number: JP-BRISTOL-MYERS SQUIBB COMPANY-2023-049209

PATIENT
  Age: 56 Year
  Sex: Male
  Weight: 70 kg

DRUGS (4)
  1. YERVOY [Suspect]
     Active Substance: IPILIMUMAB
     Indication: Malignant melanoma
  2. OPDIVO [Suspect]
     Active Substance: NIVOLUMAB
     Indication: Malignant melanoma
     Dosage: 7 CIRCLE
  3. OPDIVO [Suspect]
     Active Substance: NIVOLUMAB
     Dosage: 5 CIRCLE
  4. OPDIVO [Suspect]
     Active Substance: NIVOLUMAB
     Dosage: 5 CIRCLE

REACTIONS (2)
  - Immune-mediated lung disease [Fatal]
  - Pneumothorax [Fatal]
